FAERS Safety Report 11652795 (Version 8)
Quarter: 2017Q4

REPORT INFORMATION
  Report Type: Report from Study
  Country: GB (occurrence: GB)
  Receive Date: 20151022
  Receipt Date: 20171109
  Transmission Date: 20180320
  Serious: Yes (Life-Threatening, Hospitalization, Other)
  Sender: FDA-Public Use
  Company Number: GB-NOVOPROD-453694

PATIENT
  Age: 25 Year
  Sex: Female
  Weight: 83 kg

DRUGS (14)
  1. LEVEMIR [Suspect]
     Active Substance: INSULIN DETEMIR
     Dosage: 40 IU, QD
     Route: 058
     Dates: start: 20151013
  2. ANTI D [Concomitant]
     Indication: PROPHYLAXIS
     Dosage: 1500 IU, SINGLE
     Route: 030
     Dates: start: 20150922, end: 20150922
  3. PEPTAC                             /00550802/ [Concomitant]
     Indication: PROPHYLAXIS
     Dosage: UNK
     Route: 048
     Dates: start: 20140921, end: 20150922
  4. FLU VACCINE VII [Concomitant]
     Active Substance: INFLUENZA VIRUS VACCINE
     Indication: PROPHYLAXIS
     Dosage: 1 DF, SINGLE
     Route: 030
     Dates: start: 20151007, end: 20151007
  5. NOVORAPID [Suspect]
     Active Substance: INSULIN ASPART
     Indication: TYPE 1 DIABETES MELLITUS
     Dosage: 26 IU, QD
     Route: 058
     Dates: start: 2007
  6. LANTUS [Suspect]
     Active Substance: INSULIN GLARGINE
     Indication: TYPE 1 DIABETES MELLITUS
     Dosage: 17 IU, QD
     Route: 065
     Dates: start: 2007, end: 20150602
  7. NOVORAPID [Suspect]
     Active Substance: INSULIN ASPART
     Dosage: 32 IU, QD
     Route: 058
     Dates: start: 20151013
  8. GLUCOSE [Concomitant]
     Active Substance: DEXTROSE
     Indication: PROPHYLAXIS
     Dosage: 60 ML, SINGLE GLUCOSE JUICE
     Route: 048
     Dates: start: 20151013, end: 20151013
  9. LEVEMIR [Suspect]
     Active Substance: INSULIN DETEMIR
     Indication: TYPE 1 DIABETES MELLITUS
     Dosage: 16 IU, QD
     Route: 058
     Dates: start: 20150602
  10. ASPIRIN                            /00002701/ [Concomitant]
     Active Substance: ASPIRIN
     Indication: PROPHYLAXIS
     Dosage: 75 MG, QD
     Route: 048
     Dates: start: 20150421
  11. BOOSTRIX IPV [Concomitant]
     Indication: PROPHYLAXIS
     Dosage: UNK, SINGLE
     Route: 065
     Dates: start: 20151007, end: 20151007
  12. VITAMIN D                          /00107901/ [Concomitant]
     Active Substance: ERGOCALCIFEROL
     Indication: PROPHYLAXIS
     Dosage: 1 TAB, QD
     Route: 048
     Dates: start: 2015
  13. FOLIC ACID. [Concomitant]
     Active Substance: FOLIC ACID
     Indication: PROPHYLAXIS
     Dosage: 5 MG, QD
     Route: 065
     Dates: start: 2015
  14. BETNESOL                           /00008502/ [Concomitant]
     Active Substance: BETAMETHASONE
     Indication: DELIVERY
     Dosage: UNK
     Route: 065

REACTIONS (10)
  - Hypoglycaemia unawareness [Recovered/Resolved]
  - Fall [Recovered/Resolved]
  - Tachycardia [Recovered/Resolved]
  - Anaemia [Not Recovered/Not Resolved]
  - Dizziness [Recovered/Resolved]
  - Abdominal pain lower [Recovered/Resolved]
  - Polyhydramnios [Recovered/Resolved]
  - Urinary tract infection [Recovering/Resolving]
  - Hypoglycaemia [Recovered/Resolved]
  - Exposure during pregnancy [Recovered/Resolved]

NARRATIVE: CASE EVENT DATE: 20150305
